FAERS Safety Report 25855071 (Version 1)
Quarter: 2025Q3

REPORT INFORMATION
  Report Type: Spontaneous
  Country: US (occurrence: US)
  Receive Date: 20250927
  Receipt Date: 20250927
  Transmission Date: 20251020
  Serious: No
  Sender: SANOFI AVENTIS
  Company Number: US-SA-2025SA288362

PATIENT
  Age: 25 Year
  Sex: Female

DRUGS (3)
  1. DUPIXENT [Suspect]
     Active Substance: DUPILUMAB
     Indication: Eczema
     Route: 058
     Dates: start: 20250908, end: 20250908
  2. DUPIXENT [Suspect]
     Active Substance: DUPILUMAB
     Dosage: DAY 15,FOLLOWED BY 1 PEN EVERY 2 WEEKS THEREAFTER (NOT TAKEN YET)
     Route: 058
     Dates: start: 20250922
  3. CLOBETASOL [Concomitant]
     Active Substance: CLOBETASOL

REACTIONS (1)
  - Contusion [Unknown]

NARRATIVE: CASE EVENT DATE: 20250908
